FAERS Safety Report 8155176-X (Version None)
Quarter: 2012Q1

REPORT INFORMATION
  Report Type: 
  Country: None (occurrence: None)
  Receive Date: 20120221
  Receipt Date: 20120214
  Transmission Date: 20120608
  Serious: Yes (Other)
  Sender: FDA-Public Use
  Company Number: US-ROXANE LABORATORIES, INC.-2012-RO-00660RO

PATIENT
  Age: 21 Year
  Sex: Female

DRUGS (7)
  1. METHOTREXATE [Suspect]
     Indication: BEHCET'S SYNDROME
  2. CYCLOPHOSPHAMIDE [Suspect]
     Indication: BEHCET'S SYNDROME
     Route: 042
  3. CYCLOPHOSPHAMIDE [Suspect]
     Route: 042
  4. AZATHIOPRINE [Suspect]
     Indication: BEHCET'S SYNDROME
  5. INFLIXIMAB [Suspect]
     Indication: BEHCET'S SYNDROME
  6. TEMSIROLIMUS [Suspect]
     Indication: BEHCET'S SYNDROME
  7. MYCOPHENOLATE MOFETIL [Suspect]
     Indication: BEHCET'S SYNDROME

REACTIONS (6)
  - THROMBOCYTOPENIA [None]
  - BEHCET'S SYNDROME [None]
  - FEBRILE NEUTROPENIA [None]
  - CLOSTRIDIUM DIFFICILE COLITIS [None]
  - ANAEMIA [None]
  - PNEUMONIA [None]
